FAERS Safety Report 21044555 (Version 2)
Quarter: 2022Q3

REPORT INFORMATION
  Report Type: Report from Study
  Country: MX (occurrence: MX)
  Receive Date: 20220705
  Receipt Date: 20220720
  Transmission Date: 20221027
  Serious: Yes (Death, Hospitalization, Disabling, Other)
  Sender: FDA-Public Use
  Company Number: MX-UCBSA-2022038087

PATIENT
  Sex: Male
  Weight: 54 kg

DRUGS (5)
  1. LACOSAMIDE [Suspect]
     Active Substance: LACOSAMIDE
     Indication: Epilepsy
     Dosage: 0.5 DOSAGE FORM, 2X/DAY (BID)
     Route: 048
  2. LACOSAMIDE [Suspect]
     Active Substance: LACOSAMIDE
     Dosage: 1 DOSAGE FORM, 2X/DAY (BID)
     Route: 048
  3. LACOSAMIDE [Suspect]
     Active Substance: LACOSAMIDE
     Dosage: 0.5 DOSAGE FORM, 2X/DAY (BID)
     Route: 048
     Dates: end: 20211026
  4. EVIPRESS [Concomitant]
     Indication: Hypertension
  5. INSULIN NOS [Concomitant]
     Active Substance: INSULIN NOS
     Indication: Diabetes mellitus

REACTIONS (10)
  - Chronic kidney disease [Fatal]
  - Seizure [Recovered/Resolved]
  - Wheelchair user [Not Recovered/Not Resolved]
  - Immobile [Not Recovered/Not Resolved]
  - Pain in extremity [Not Recovered/Not Resolved]
  - Food refusal [Not Recovered/Not Resolved]
  - Somnolence [Not Recovered/Not Resolved]
  - Speech disorder [Not Recovered/Not Resolved]
  - Therapeutic product effect incomplete [Unknown]
  - Off label use [Unknown]

NARRATIVE: CASE EVENT DATE: 20200101
